FAERS Safety Report 6709686-X (Version None)
Quarter: 2010Q2

REPORT INFORMATION
  Report Type: 
  Country: None (occurrence: None)
  Receive Date: 20100430
  Receipt Date: 20100420
  Transmission Date: 20101027
  Serious: Yes (Death)
  Sender: FDA-Public Use
  Company Number: B0650161A

PATIENT

DRUGS (5)
  1. MELPHALAN (FORMULATION UNKNOWN) (GENERIC) (MELPHALAN) [Suspect]
     Indication: MULTIPLE MYELOMA
     Dosage: CYCLIC, ORAL
     Route: 048
  2. LENALIDOMIDE (FORMULATION UNKNOWN) (LENALIDOMIDE) [Suspect]
     Indication: MULTIPLE MYELOMA
  3. PREDNISONE [Suspect]
     Indication: MULTIPLE MYELOMA
     Dosage: ORAL
     Route: 048
  4. THALIDOMIDE [Suspect]
     Indication: MULTIPLE MYELOMA
     Dosage: ORAL
     Route: 048
  5. ASPIRIN [Concomitant]

REACTIONS (1)
  - MENINGITIS [None]
